FAERS Safety Report 4736165-1 (Version None)
Quarter: 2005Q3

REPORT INFORMATION
  Report Type: 
  Country: None (occurrence: None)
  Receive Date: 20050728
  Receipt Date: 20050511
  Transmission Date: 20060218
  Serious: Yes (Disabling, Other)
  Sender: FDA-Public Use
  Company Number: 200511305US

PATIENT
  Age: 17 Year
  Sex: Female

DRUGS (4)
  1. KETEK [Suspect]
     Indication: SINUSITIS
     Dosage: 400 MG QD PO
     Route: 048
     Dates: start: 20050214, end: 20050215
  2. PSEUDOEPHEDRINE HYDROCHLORIDE, IBUPROFEN (ADVIL COLD + SINUS) [Concomitant]
  3. TETRACYCLINE [Concomitant]
  4. IBUPROFEN [Concomitant]

REACTIONS (5)
  - DIPLOPIA [None]
  - DIZZINESS [None]
  - PRURITUS GENERALISED [None]
  - VISION BLURRED [None]
  - VISUAL DISTURBANCE [None]
